FAERS Safety Report 9360635 (Version 3)
Quarter: 2013Q3

REPORT INFORMATION
  Report Type: Spontaneous
  Country: SE (occurrence: SE)
  Receive Date: 20130621
  Receipt Date: 20130918
  Transmission Date: 20140515
  Serious: Yes (Other)
  Sender: FDA-Public Use
  Company Number: SE-ASTRAZENECA-2013SE42565

PATIENT
  Age: 28625 Day
  Sex: Female

DRUGS (6)
  1. BRILIQUE [Suspect]
     Route: 048
     Dates: start: 201212
  2. LEVAXIN [Interacting]
     Indication: HYPOTHYROIDISM
     Route: 048
  3. ATROVASTATIN [Concomitant]
  4. ENALAPRIL [Concomitant]
  5. UNSPECIFIED [Concomitant]
  6. TROMBYL [Concomitant]

REACTIONS (2)
  - Potentiating drug interaction [Unknown]
  - Therapeutic response increased [Unknown]
